FAERS Safety Report 4296104-7 (Version None)
Quarter: 2004Q1

REPORT INFORMATION
  Report Type: 
  Country: None (occurrence: None)
  Receive Date: 20040212
  Receipt Date: 20040202
  Transmission Date: 20041129
  Serious: Yes (Life-Threatening, Other)
  Sender: FDA-Public Use
  Company Number: HQWYE791502FEB04

PATIENT
  Age: 81 Year
  Sex: Female

DRUGS (10)
  1. INDERAL [Suspect]
     Indication: SINUS TACHYCARDIA
     Dosage: ORAL
     Route: 048
     Dates: start: 20030810, end: 20030812
  2. MERCAZOLE (THIAMAZOLE) [Concomitant]
  3. BLOPRESS (CANDESARTAN CILEXETIL) [Concomitant]
  4. MADOPAR (BENSERAZIDE HYDROCHLORIDE/LEVODOPA) [Concomitant]
  5. SEREVENT [Concomitant]
  6. EPADEL (ETHYL ICOSAPENTATE) [Concomitant]
  7. LAC B (LACTOBACILLUS BIFIDUS, LYOPHILIZED) [Concomitant]
  8. SELBEX (TEPRENONE) [Concomitant]
  9. FAMOTIDINE [Concomitant]
  10. SALMETEROL XINAFOATE [Concomitant]

REACTIONS (5)
  - ARTERIOSPASM CORONARY [None]
  - CARDIAC ARREST [None]
  - VENTRICULAR FIBRILLATION [None]
  - VENTRICULAR FLUTTER [None]
  - VENTRICULAR TACHYCARDIA [None]
